FAERS Safety Report 8966515 (Version 1)
Quarter: 2012Q4

REPORT INFORMATION
  Report Type: Spontaneous
  Country: DK (occurrence: None)
  Receive Date: 20121206
  Receipt Date: 20121206
  Transmission Date: 20130627
  Serious: Yes (Hospitalization)
  Sender: FDA-Public Use
  Company Number: 2012MA013828

PATIENT
  Age: 39 Year
  Sex: Female

DRUGS (5)
  1. METFORMIN HYDROCHLORIDE [Suspect]
     Indication: SUICIDE ATTEMPT
     Route: 048
     Dates: start: 20121011
  2. SERTRALINE HYDROCHLORIDE [Suspect]
     Indication: SUICIDE ATTEMPT
     Route: 048
     Dates: start: 20121011
  3. DICLOFENAC SODIUM [Suspect]
     Indication: SUICIDE ATTEMPT
     Route: 030
     Dates: start: 20121011
  4. PANTOPRAZOLE SODIUM [Suspect]
     Indication: SUICIDE ATTEMPT
     Route: 048
     Dates: start: 20121011
  5. LORAZEPAM (LORAZEPAM) [Suspect]
     Indication: SUICIDE ATTEMPT
     Route: 048
     Dates: start: 20121011

REACTIONS (4)
  - Toxicity to various agents [None]
  - Intentional drug misuse [None]
  - Overdose [None]
  - Suicidal ideation [None]
